FAERS Safety Report 6695446-5 (Version None)
Quarter: 2010Q2

REPORT INFORMATION
  Report Type: 
  Country: None (occurrence: None)
  Receive Date: 20100422
  Receipt Date: 20100422
  Transmission Date: 20101027
  Serious: Yes (Life-Threatening, Hospitalization)
  Sender: FDA-Public Use
  Company Number: None

PATIENT
  Sex: Male
  Weight: 124 kg

DRUGS (3)
  1. RIBASPHERE [Suspect]
     Indication: HEPATITIS C
     Dosage: 2600 MG EACH
     Dates: start: 20100120, end: 20100315
  2. PEG-INTRON [Suspect]
     Indication: HEPATITIS C
     Dosage: 4 - 28 DAY
     Dates: start: 20100120, end: 20100315
  3. RIBAPAK 1200 [Suspect]

REACTIONS (2)
  - MALAISE [None]
  - PANCREATITIS [None]
